FAERS Safety Report 4928750-9 (Version None)
Quarter: 2006Q1

REPORT INFORMATION
  Report Type: 
  Country: None (occurrence: None)
  Receive Date: 20060227
  Receipt Date: 20060227
  Transmission Date: 20060701
  Serious: Yes (Hospitalization, Disabling)
  Sender: FDA-Public Use
  Company Number: None

PATIENT
  Age: 43 Year
  Sex: Female
  Weight: 96.4 kg

DRUGS (2)
  1. DICLOFENAC EPOLAMINE PATCH [Suspect]
     Indication: BACK PAIN
     Dosage: 75 MG   BID   PO   (DURATION: LONG TERM)
     Route: 048
  2. IBUPROFEN [Suspect]
     Indication: BACK PAIN
     Dosage: 200 MG   UP TO 8/DAY  PO   (DURATION: LAST COUPLE WEEKS)
     Route: 048

REACTIONS (2)
  - ANAEMIA [None]
  - GASTROINTESTINAL HAEMORRHAGE [None]
